FAERS Safety Report 9270684 (Version 1)
Quarter: 2013Q2

REPORT INFORMATION
  Report Type: Spontaneous
  Country: GB (occurrence: GB)
  Receive Date: 20130504
  Receipt Date: 20130504
  Transmission Date: 20140414
  Serious: Yes (Other)
  Sender: FDA-Public Use
  Company Number: GB-MYLANLABS-2013S1008843

PATIENT
  Sex: Male

DRUGS (1)
  1. AMLODIPINE [Suspect]
     Indication: BLOOD PRESSURE INCREASED

REACTIONS (6)
  - Dizziness [Unknown]
  - Syncope [Unknown]
  - Ligament sprain [Not Recovered/Not Resolved]
  - Muscle injury [Unknown]
  - Neck injury [Unknown]
  - Fall [None]
